FAERS Safety Report 5369430-8 (Version None)
Quarter: 2007Q2

REPORT INFORMATION
  Report Type: 
  Country: None (occurrence: None)
  Receive Date: 20070625
  Receipt Date: 20070611
  Transmission Date: 20071010
  Serious: Yes (Hospitalization, Other)
  Sender: FDA-Public Use
  Company Number: US-ELI_LILLY_AND_COMPANY-US200703002023

PATIENT
  Age: 59 Year
  Sex: Female
  Weight: 58.956 kg

DRUGS (12)
  1. ZYPREXA [Suspect]
     Indication: BIPOLAR DISORDER
     Dosage: 10 MG, DAILY (1/D)
     Dates: start: 20000203, end: 20000719
  2. ZYPREXA [Suspect]
     Dosage: 5 MG, DAILY (1/D)
     Dates: start: 20000720, end: 20001231
  3. ZYPREXA [Suspect]
     Dosage: 5 MG, DAILY (1/D)
     Dates: start: 20030122
  4. ZYPREXA [Suspect]
     Dosage: 15 MG, DAILY (1/D)
     Dates: start: 20060119, end: 20060224
  5. ZYPREXA [Suspect]
     Dosage: 20 MG, DAILY (1/D)
     Dates: start: 20060224
  6. ABILIFY [Concomitant]
     Dates: start: 20050221
  7. SEROQUEL [Concomitant]
     Dates: start: 20030101, end: 20070116
  8. DEPAKOTE [Concomitant]
     Dates: start: 20000101, end: 20060101
  9. CELEXA [Concomitant]
     Dates: start: 20000201, end: 20000501
  10. SYMBYAX [Suspect]
     Dates: start: 20040101, end: 20050101
  11. ZOLOFT [Concomitant]
     Dates: start: 20030101
  12. SERZONE [Concomitant]
     Dates: start: 20000501, end: 20001001

REACTIONS (14)
  - BLOOD CHOLESTEROL INCREASED [None]
  - BLOOD TRIGLYCERIDES INCREASED [None]
  - CEREBROVASCULAR DISORDER [None]
  - DEPRESSION [None]
  - DIABETES MELLITUS NON-INSULIN-DEPENDENT [None]
  - HYPERGLYCAEMIA [None]
  - HYPERPHAGIA [None]
  - HYPERTENSION [None]
  - METABOLIC ACIDOSIS [None]
  - MYOCARDIAL INFARCTION [None]
  - OBESITY [None]
  - POLYURIA [None]
  - STENT PLACEMENT [None]
  - VISION BLURRED [None]
